FAERS Safety Report 7097048-8 (Version None)
Quarter: 2010Q4

REPORT INFORMATION
  Report Type: 
  Country: None (occurrence: None)
  Receive Date: 20101111
  Receipt Date: 20101103
  Transmission Date: 20110411
  Serious: Yes (Hospitalization)
  Sender: FDA-Public Use
  Company Number: CA-BAYER-201025309NA

PATIENT
  Age: 24 Year
  Sex: Female
  Weight: 52 kg

DRUGS (3)
  1. AVELOX [Suspect]
     Indication: PRODUCT USED FOR UNKNOWN INDICATION
     Dates: start: 20091214, end: 20091218
  2. TAMIFLU [Concomitant]
  3. CYCLEN [Concomitant]

REACTIONS (12)
  - BODY TEMPERATURE INCREASED [None]
  - DIZZINESS [None]
  - DRY MOUTH [None]
  - ELECTROCARDIOGRAM QT PROLONGED [None]
  - ELECTROCARDIOGRAM ST SEGMENT ELEVATION [None]
  - HOT FLUSH [None]
  - INSOMNIA [None]
  - LOSS OF CONSCIOUSNESS [None]
  - NAUSEA [None]
  - PARAESTHESIA [None]
  - PARAESTHESIA ORAL [None]
  - PRURITUS [None]
